FAERS Safety Report 7201169-6 (Version None)
Quarter: 2010Q4

REPORT INFORMATION
  Report Type: 
  Country: None (occurrence: None)
  Receive Date: 20101229
  Receipt Date: 20101215
  Transmission Date: 20110411
  Serious: Yes (Death, Hospitalization, Other)
  Sender: FDA-Public Use
  Company Number: US-CELGENEUS-163-21880-08120038

PATIENT
  Age: 66 Year
  Sex: Female
  Weight: 39.2 kg

DRUGS (7)
  1. REVLIMID [Suspect]
     Route: 048
     Dates: start: 20081110, end: 20081119
  2. DOXYCYCLINE [Concomitant]
     Route: 065
  3. CIPRO [Concomitant]
     Route: 065
  4. FAMVIR [Concomitant]
     Route: 065
  5. MICAFUNGIN [Concomitant]
     Route: 065
  6. OMNICEF [Concomitant]
     Route: 065
  7. VORICONAZOLE [Concomitant]
     Route: 065

REACTIONS (5)
  - ACUTE RESPIRATORY DISTRESS SYNDROME [None]
  - FEBRILE NEUTROPENIA [None]
  - HAEMOGLOBIN DECREASED [None]
  - MYOCARDIAL INFARCTION [None]
  - PNEUMONIA [None]
